FAERS Safety Report 9345351 (Version 1)
Quarter: 2013Q2

REPORT INFORMATION
  Report Type: Spontaneous
  Country: US (occurrence: US)
  Receive Date: 20130613
  Receipt Date: 20130613
  Transmission Date: 20140414
  Serious: Yes (Hospitalization, Other)
  Sender: FDA-Public Use
  Company Number: US-ROCHE-1235269

PATIENT
  Sex: Male

DRUGS (2)
  1. RITUXAN [Suspect]
     Indication: NON-HODGKIN^S LYMPHOMA
     Route: 041
     Dates: end: 20130505
  2. RITUXAN [Suspect]
     Indication: LYMPHOMA

REACTIONS (3)
  - Atrial fibrillation [Unknown]
  - Haemorrhage [Unknown]
  - Chills [Unknown]
